FAERS Safety Report 11854767 (Version 1)
Quarter: 2015Q4

REPORT INFORMATION
  Report Type: Spontaneous
  Country: US (occurrence: US)
  Receive Date: 20151221
  Receipt Date: 20151221
  Transmission Date: 20160305
  Serious: No
  Sender: FDA-Public Use
  Company Number: US-CELGENEUS-USA-2015121407

PATIENT
  Age: 74 Year
  Sex: Male

DRUGS (1)
  1. THALOMID [Suspect]
     Active Substance: THALIDOMIDE
     Indication: STOMATITIS
     Dosage: 100 MILLIGRAM
     Route: 048
     Dates: start: 201511, end: 20151204

REACTIONS (2)
  - Dysstasia [Unknown]
  - Glossitis [Unknown]

NARRATIVE: CASE EVENT DATE: 201511
